FAERS Safety Report 5268962-0 (Version None)
Quarter: 2007Q1

REPORT INFORMATION
  Report Type: 
  Country: None (occurrence: None)
  Receive Date: 20070319
  Receipt Date: 20070308
  Transmission Date: 20070707
  Serious: Yes (Other)
  Sender: FDA-Public Use
  Company Number: BE-JNJFOC-20070302288

PATIENT
  Age: 50 Year
  Sex: Female

DRUGS (3)
  1. SPORANOX [Suspect]
     Indication: DRUG USE FOR UNKNOWN INDICATION
     Route: 048
  2. BISOPROLOL [Concomitant]
     Route: 048
  3. PANTOPRAZOLE SODIUM [Concomitant]
     Route: 048

REACTIONS (2)
  - DYSPNOEA [None]
  - WEIGHT INCREASED [None]
